FAERS Safety Report 10598038 (Version 14)
Quarter: 2016Q1

REPORT INFORMATION
  Report Type: Spontaneous
  Country: CA (occurrence: CA)
  Receive Date: 20141121
  Receipt Date: 20160301
  Transmission Date: 20160525
  Serious: Yes (Other)
  Sender: FDA-Public Use
  Company Number: CA-GLAXOSMITHKLINE-A1064775A

PATIENT
  Age: 36 Year
  Sex: Female
  Weight: 75 kg

DRUGS (32)
  1. BENLYSTA [Suspect]
     Active Substance: BELIMUMAB
     Dosage: 850 MG, Q4 WEEKS
     Route: 042
  2. BENLYSTA [Suspect]
     Active Substance: BELIMUMAB
     Dosage: 850 MG, UNK
     Route: 042
  3. XANAX [Concomitant]
     Active Substance: ALPRAZOLAM
     Indication: MUSCLE SPASMS
  4. CELEBREX [Concomitant]
     Active Substance: CELECOXIB
     Indication: GASTROOESOPHAGEAL REFLUX DISEASE
  5. QUETIAPINE [Concomitant]
     Active Substance: QUETIAPINE
     Indication: ANTIDEPRESSANT THERAPY
     Dosage: 2 DF, UNK
  6. BENLYSTA [Suspect]
     Active Substance: BELIMUMAB
     Dosage: 850 MG, UNK
     Route: 042
  7. AMLODIPINE [Concomitant]
     Active Substance: AMLODIPINE BESYLATE
     Indication: FIBROMYALGIA
     Dosage: 1 TABLET, QD
  8. DOMPERIDONE [Concomitant]
     Active Substance: DOMPERIDONE
     Indication: NAUSEA
     Dosage: 1 TABLET, BID
  9. TORADOL [Concomitant]
     Active Substance: KETOROLAC TROMETHAMINE
     Indication: MIGRAINE
     Dosage: UNK
  10. SALVENT CFC FREE [Concomitant]
     Indication: DYSPNOEA
     Dosage: 1 TO 2 PUFFS UP TO 4 TIMES DAILY
     Route: 055
  11. BENLYSTA [Suspect]
     Active Substance: BELIMUMAB
     Dosage: 850 MG, UNK
     Route: 042
  12. BENLYSTA [Suspect]
     Active Substance: BELIMUMAB
     Indication: SYSTEMIC LUPUS ERYTHEMATOSUS
     Dosage: 800 MG EVERY 4 WEEKS
     Route: 042
     Dates: start: 2013
  13. BENLYSTA [Suspect]
     Active Substance: BELIMUMAB
     Dosage: 800 MG,  0,2,4 WEEKS, EVERY 4 WEEKS
     Route: 042
     Dates: start: 20140213
  14. XANAX [Concomitant]
     Active Substance: ALPRAZOLAM
     Indication: ANXIETY
     Dosage: 1 TO 2 DURING DAY
  15. AMLODIPINE [Concomitant]
     Active Substance: AMLODIPINE BESYLATE
     Indication: BLOOD PRESSURE ABNORMAL
  16. DICLOFENAC [Concomitant]
     Active Substance: DICLOFENAC
     Indication: PAIN
     Dosage: UNK
  17. FLAGYSTATIN [Concomitant]
     Indication: VULVOVAGINAL MYCOTIC INFECTION
     Dosage: 1 TUBE PER WEEK
  18. PYRIDIN(PHENAZOPYRIDINE) [Concomitant]
     Indication: NEUROGENIC BLADDER
     Dosage: TAKE 1 TO 2 CAPS UP TO 4 TIMES DAILY
  19. PREGABALIN. [Concomitant]
     Active Substance: PREGABALIN
     Indication: FIBROMYALGIA
     Dosage: 1 CAPSULE, BID
  20. HYDERM (HYDROCORTISONE ACETATE) [Concomitant]
     Indication: RASH
     Dosage: UNK
  21. PREGABALIN. [Concomitant]
     Active Substance: PREGABALIN
     Indication: CARDIAC DISORDER
  22. CYMBALTA [Concomitant]
     Active Substance: DULOXETINE HYDROCHLORIDE
     Indication: HEADACHE
  23. PANTOPRAZOL [Concomitant]
     Active Substance: PANTOPRAZOLE SODIUM
     Indication: HYPERCHLORHYDRIA
     Dosage: 1 DF, BID
  24. CELEBREX [Concomitant]
     Active Substance: CELECOXIB
     Indication: INFLAMMATORY PAIN
     Dosage: 1 TO 2 PILLS DAILY
  25. TORADOL [Concomitant]
     Active Substance: KETOROLAC TROMETHAMINE
     Indication: INFLAMMATION
  26. PREGABALIN. [Concomitant]
     Active Substance: PREGABALIN
     Indication: BLOOD PRESSURE ABNORMAL
  27. CELEBREX [Concomitant]
     Active Substance: CELECOXIB
     Indication: ABDOMINAL PAIN UPPER
  28. CANESTEN [Concomitant]
     Active Substance: CLOTRIMAZOLE
     Indication: CANDIDA INFECTION
     Dosage: 2 TO 3 PER WEEK
  29. CYMBALTA [Concomitant]
     Active Substance: DULOXETINE HYDROCHLORIDE
     Indication: FIBROMYALGIA
     Dosage: 1 DF, QD
  30. DICLOFENAC [Concomitant]
     Active Substance: DICLOFENAC
     Indication: INFLAMMATION
  31. PERIGARD(CHLORHEXIDINE GLUCONATE) [Concomitant]
     Indication: MOUTH ULCERATION
     Dosage: UNK
  32. PREDNISONE. [Concomitant]
     Active Substance: PREDNISONE
     Indication: GASTROOESOPHAGEAL REFLUX DISEASE
     Dosage: 12 MG, QD

REACTIONS (22)
  - Interstitial lung disease [Unknown]
  - Urinary tract infection [Recovered/Resolved]
  - Chills [Unknown]
  - Bronchitis [Recovered/Resolved]
  - Pneumonia [Unknown]
  - Candida infection [Not Recovered/Not Resolved]
  - Cystitis [Unknown]
  - Malaise [Recovering/Resolving]
  - Herpes zoster [Unknown]
  - Lymphadenopathy [Recovering/Resolving]
  - Nasopharyngitis [Recovering/Resolving]
  - Disability [Unknown]
  - Headache [Recovering/Resolving]
  - Systemic lupus erythematosus [Recovering/Resolving]
  - Condition aggravated [Unknown]
  - Oropharyngeal pain [Recovering/Resolving]
  - Infection [Unknown]
  - Serositis [Unknown]
  - Systemic mycosis [Not Recovered/Not Resolved]
  - Tubulointerstitial nephritis [Unknown]
  - Arthritis [Unknown]
  - Influenza [Recovering/Resolving]

NARRATIVE: CASE EVENT DATE: 20130313
